FAERS Safety Report 9808484 (Version 1)
Quarter: 2014Q1

REPORT INFORMATION
  Report Type: Spontaneous
  Country: US (occurrence: US)
  Receive Date: 20140110
  Receipt Date: 20140110
  Transmission Date: 20141002
  Serious: No
  Sender: FDA-Public Use
  Company Number: US-GILEAD-2010-0030630

PATIENT
  Sex: Male

DRUGS (1)
  1. VIREAD [Suspect]
     Indication: HEPATITIS B
     Dates: start: 20100709

REACTIONS (5)
  - Hypoaesthesia [Unknown]
  - Depression [Unknown]
  - Crying [Unknown]
  - Back pain [Unknown]
  - Diarrhoea [Unknown]
